FAERS Safety Report 5709031-2 (Version None)
Quarter: 2008Q2

REPORT INFORMATION
  Report Type: 
  Country: None (occurrence: None)
  Receive Date: 20080418
  Receipt Date: 20080414
  Transmission Date: 20081010
  Serious: Yes (Hospitalization, Other)
  Sender: FDA-Public Use
  Company Number: HQWYE817104AUG04

PATIENT
  Sex: Female
  Weight: 47.67 kg

DRUGS (4)
  1. PREMPRO [Suspect]
     Indication: MENOPAUSE
     Dosage: UNKNOWN
     Dates: start: 19980101
  2. PROVERA [Suspect]
     Indication: MENOPAUSE
     Dosage: UNKNOWN
  3. FIORINAL [Concomitant]
  4. PREMARIN [Suspect]
     Dosage: UNKNOWN

REACTIONS (4)
  - BREAST CANCER RECURRENT [None]
  - EMOTIONAL DISORDER [None]
  - FATIGUE [None]
  - PAIN [None]
